FAERS Safety Report 4837618-8 (Version None)
Quarter: 2005Q4

REPORT INFORMATION
  Report Type: 
  Country: None (occurrence: None)
  Receive Date: 20051024
  Receipt Date: 20050803
  Transmission Date: 20060501
  Serious: No
  Sender: FDA-Public Use
  Company Number: 216661

PATIENT
  Age: 65 Year
  Sex: Female

DRUGS (11)
  1. XOLAIR [Suspect]
     Indication: ASTHMA
     Dosage: SEE IMAGE
     Route: 058
     Dates: start: 20030704
  2. XOLAIR [Suspect]
     Indication: ASTHMA
     Dosage: SEE IMAGE
     Route: 058
     Dates: start: 20050815
  3. PRINIVIL [Concomitant]
  4. CARDIZEM CD [Concomitant]
  5. ATIVAN [Concomitant]
  6. ADVAIR DISKUS 100/50 [Concomitant]
  7. ATIVAN [Concomitant]
  8. PRILOSEC [Concomitant]
  9. PROVENTIL MDI (ALBUTEROL, ALBUTEROL SULFATE) [Concomitant]
  10. LANTUS [Concomitant]
  11. HUMALOG [Concomitant]

REACTIONS (1)
  - WEIGHT DECREASED [None]
